FAERS Safety Report 14875266 (Version 1)
Quarter: 2018Q2

REPORT INFORMATION
  Report Type: Spontaneous
  Country: US (occurrence: US)
  Receive Date: 20180424
  Receipt Date: 20180424
  Transmission Date: 20180711
  Serious: Yes (Hospitalization)
  Sender: FDA-Public Use
  Company Number: None

PATIENT
  Age: 41 Year
  Sex: Female
  Weight: 121.5 kg

DRUGS (2)
  1. EPINEPHRINE. [Suspect]
     Active Substance: EPINEPHRINE
     Indication: OPHTHALMOLOGICAL EXAMINATION
     Dosage: ?          OTHER ROUTE:BLOCK?
     Dates: start: 20180309
  2. EPINEPHRINE. [Suspect]
     Active Substance: EPINEPHRINE
     Indication: DENTAL LOCAL ANAESTHESIA
     Dosage: ?          OTHER ROUTE:BLOCK?
     Dates: start: 20180309

REACTIONS (11)
  - Swelling [None]
  - Gaze palsy [None]
  - Dizziness [None]
  - Pain in jaw [None]
  - Nausea [None]
  - Sensory disturbance [None]
  - Headache [None]
  - Movement disorder [None]
  - Brain oedema [None]
  - Tinnitus [None]
  - Palpitations [None]

NARRATIVE: CASE EVENT DATE: 20180309
